FAERS Safety Report 8369655-3 (Version None)
Quarter: 2012Q1

REPORT INFORMATION
  Report Type: 
  Country: None (occurrence: None)
  Receive Date: 20120323
  Receipt Date: 20110519
  Transmission Date: 20120608
  Serious: Yes (Hospitalization, Other)
  Sender: FDA-Public Use
  Company Number: 163-21880-11012598

PATIENT
  Age: 81 Year
  Sex: Female

DRUGS (15)
  1. AMLODIPINE [Concomitant]
  2. HYDROCHLOROTHIAZIDE [Concomitant]
  3. HYDROCODONE APAP (PROCET /USA/) [Concomitant]
  4. ASPIRIN [Concomitant]
  5. FISH OIL (FISH OIL) [Concomitant]
  6. REVLIMID [Suspect]
     Indication: MULTIPLE MYELOMA
     Dosage: 20 MG, DAILY X 21 DAYS ON + 7 DAYS OFF, PO, 10 MG, 1 IN 1 D, PO
     Route: 048
     Dates: start: 20110214, end: 20110217
  7. REVLIMID [Suspect]
     Indication: MULTIPLE MYELOMA
     Dosage: 20 MG, DAILY X 21 DAYS ON + 7 DAYS OFF, PO, 10 MG, 1 IN 1 D, PO
     Route: 048
     Dates: start: 20101223
  8. ROSUVASTATIN [Concomitant]
  9. NORVASC [Concomitant]
  10. CALCIUM WITH VITAMIN D (CALCIUM WITH VITAMIN D) [Concomitant]
  11. LEVOTHYROXINE SODIUM [Concomitant]
  12. RANITIDINE HCL (RANITIDINE HYDROCHLORIDE) [Concomitant]
  13. ASCORBIC ACID [Concomitant]
  14. LISINOPRIL [Concomitant]
  15. OCUVITE (OCUVITE) [Concomitant]

REACTIONS (3)
  - RASH MACULO-PAPULAR [None]
  - HAEMATOCRIT ABNORMAL [None]
  - HAEMOGLOBIN ABNORMAL [None]
